FAERS Safety Report 9000227 (Version 1)
Quarter: 2013Q1

REPORT INFORMATION
  Report Type: Spontaneous
  Country: ES (occurrence: ES)
  Receive Date: 20130102
  Receipt Date: 20130102
  Transmission Date: 20140127
  Serious: Yes (Other)
  Sender: FDA-Public Use
  Company Number: ES-009507513-1212ESP010757

PATIENT
  Age: 37 Year
  Sex: 0

DRUGS (6)
  1. REXER [Suspect]
     Indication: BIPOLAR I DISORDER
     Dosage: UNK
     Route: 048
     Dates: start: 20120409, end: 20120411
  2. HALOPERIDOL [Suspect]
     Indication: PERSONALITY DISORDER
     Dosage: UNK UNK, QD
     Route: 048
     Dates: start: 20120412, end: 20120424
  3. LORAZEPAM [Concomitant]
     Indication: ANXIETY
     Dosage: 2.33333 MG, TID
     Route: 048
     Dates: start: 20120403
  4. INVEGA [Concomitant]
     Indication: PERSONALITY DISORDER
     Dosage: 12 MG, QD
     Route: 048
     Dates: start: 20120403
  5. STILNOX [Concomitant]
     Indication: INSOMNIA
     Dosage: 003 MG, QD
     Route: 048
     Dates: start: 20120403
  6. IBUPROFEN [Concomitant]
     Indication: PAIN
     Dosage: 1200 MG, QD
     Route: 048
     Dates: start: 20120403

REACTIONS (1)
  - Hepatitis [Unknown]
